FAERS Safety Report 23977225 (Version 1)
Quarter: 2024Q2

REPORT INFORMATION
  Report Type: Spontaneous
  Country: US (occurrence: US)
  Receive Date: 20240614
  Receipt Date: 20240614
  Transmission Date: 20240716
  Serious: Yes (Other)
  Sender: FDA-Public Use
  Company Number: US-ABP-000046

PATIENT
  Age: 56 Year
  Sex: Male

DRUGS (7)
  1. ATOVAQUONE [Suspect]
     Active Substance: ATOVAQUONE
     Indication: Babesiosis
     Dosage: ON DAY 120, USE OF A LOWER DOSE OF ATOVAQUONE (500 MG INSTEAD OF 750 MG TWICE DAILY)
     Route: 065
  2. ATOVAQUONE [Suspect]
     Active Substance: ATOVAQUONE
     Indication: Babesiosis
     Route: 065
  3. AZITHROMYCIN [Suspect]
     Active Substance: AZITHROMYCIN
     Indication: Babesiosis
     Dosage: ON DAY 120, HIGH DOSE AZITHROMYCIN (1000 MG INSTEAD OF 500 MG DAILY)
     Route: 065
  4. AZITHROMYCIN [Suspect]
     Active Substance: AZITHROMYCIN
     Indication: Babesiosis
     Route: 065
  5. AZITHROMYCIN [Suspect]
     Active Substance: AZITHROMYCIN
     Indication: Babesiosis
     Route: 065
  6. ATOVAQUONE\PROGUANIL [Suspect]
     Active Substance: ATOVAQUONE\PROGUANIL
     Indication: Babesiosis
     Dosage: 250/100 MG TWICE DAILY
     Route: 065
  7. CLINDAMYCIN [Suspect]
     Active Substance: CLINDAMYCIN
     Indication: Babesiosis
     Route: 065

REACTIONS (3)
  - Babesiosis [Recovered/Resolved]
  - Disease recurrence [Recovered/Resolved]
  - Drug resistance [Not Recovered/Not Resolved]
